FAERS Safety Report 6372904-4 (Version None)
Quarter: 2009Q3

REPORT INFORMATION
  Report Type: 
  Country: None (occurrence: None)
  Receive Date: 20090924
  Receipt Date: 20081202
  Transmission Date: 20100115
  Serious: Yes (Other)
  Sender: FDA-Public Use
  Company Number: US-ASTRAZENECA-2008UW26837

PATIENT
  Age: 55 Year
  Sex: Male

DRUGS (5)
  1. SEROQUEL [Suspect]
     Route: 048
  2. SEROQUEL [Suspect]
     Route: 048
     Dates: start: 20080401
  3. EFFEXOR [Concomitant]
  4. TRAZODONE [Concomitant]
  5. LOVASTATIN [Concomitant]

REACTIONS (1)
  - DYSTONIA [None]
